FAERS Safety Report 12876637 (Version 1)
Quarter: 2016Q4

REPORT INFORMATION
  Report Type: Report from Study
  Country: CN (occurrence: CN)
  Receive Date: 20161024
  Receipt Date: 20161024
  Transmission Date: 20170207
  Serious: Yes (Hospitalization, Other)
  Sender: FDA-Public Use
  Company Number: CN-ASTELLAS-2016US041268

PATIENT
  Sex: Male

DRUGS (1)
  1. ERLOTINIB [Suspect]
     Active Substance: ERLOTINIB
     Indication: NON-SMALL CELL LUNG CANCER
     Route: 048
     Dates: start: 20110330

REACTIONS (6)
  - Malignant neoplasm progression [Unknown]
  - Drug ineffective [Unknown]
  - Drug resistance [Unknown]
  - Extrasystoles [Unknown]
  - Disease recurrence [Unknown]
  - Haemoptysis [Unknown]
